FAERS Safety Report 12595322 (Version 1)
Quarter: 2016Q3

REPORT INFORMATION
  Report Type: Spontaneous
  Country: US (occurrence: US)
  Receive Date: 20160726
  Receipt Date: 20160726
  Transmission Date: 20161109
  Serious: Yes (Hospitalization, Disabling, Other)
  Sender: FDA-Public Use
  Company Number: US-PFIZER INC-2015387784

PATIENT
  Age: 51 Year
  Sex: Male

DRUGS (2)
  1. DEPO-TESTOSTERONE [Suspect]
     Active Substance: TESTOSTERONE CYPIONATE
     Indication: HORMONE REPLACEMENT THERAPY
     Dosage: UNK
     Dates: start: 20150304
  2. ANDRODERM [Suspect]
     Active Substance: TESTOSTERONE
     Indication: HORMONE REPLACEMENT THERAPY
     Dosage: UNK
     Dates: start: 2007, end: 2015

REACTIONS (7)
  - Cerebrovascular accident [Unknown]
  - Coronary artery disease [Unknown]
  - Ischaemic cardiomyopathy [Unknown]
  - Hyperaesthesia [Not Recovered/Not Resolved]
  - Cardiac failure congestive [Unknown]
  - Balance disorder [Not Recovered/Not Resolved]
  - Hemiparesis [Not Recovered/Not Resolved]

NARRATIVE: CASE EVENT DATE: 2015
